FAERS Safety Report 5423670-8 (Version None)
Quarter: 2007Q3

REPORT INFORMATION
  Report Type: 
  Country: None (occurrence: None)
  Receive Date: 20070823
  Receipt Date: 20070813
  Transmission Date: 20080115
  Serious: Yes (Hospitalization)
  Sender: FDA-Public Use
  Company Number: B0470537A

PATIENT
  Age: 33 Year
  Sex: Female
  Weight: 98 kg

DRUGS (4)
  1. LAMICTAL [Suspect]
     Indication: EPILEPSY
     Dosage: 1TAB PER DAY
     Route: 048
     Dates: start: 20041231, end: 20061024
  2. SPECIAFOLDINE [Suspect]
     Dosage: 5MG PER DAY
     Route: 048
     Dates: start: 20060601, end: 20061029
  3. NEURONTIN [Suspect]
     Dosage: 1800MG PER DAY
     Route: 048
     Dates: start: 20060531, end: 20061029
  4. URBANYL [Suspect]
     Dosage: 10MG THREE TIMES PER DAY
     Route: 048
     Dates: start: 20020621, end: 20061029

REACTIONS (6)
  - DRUG EXPOSURE DURING PREGNANCY [None]
  - PRURIGO [None]
  - PRURITUS [None]
  - RASH [None]
  - TOXIC SKIN ERUPTION [None]
  - URTICARIA [None]
